FAERS Safety Report 16807793 (Version 1)
Quarter: 2019Q3

REPORT INFORMATION
  Report Type: Spontaneous
  Country: DE (occurrence: DE)
  Receive Date: 20190915
  Receipt Date: 20190915
  Transmission Date: 20191005
  Serious: Yes (Hospitalization)
  Sender: FDA-Public Use
  Company Number: PHHY2019DE210264

PATIENT
  Age: 65 Year
  Sex: Male

DRUGS (2)
  1. METHOTREXATE SODIUM. [Suspect]
     Active Substance: METHOTREXATE SODIUM
     Indication: PRODUCT USED FOR UNKNOWN INDICATION
     Dosage: 15 MG, UNK (SINGLE)
     Route: 065
  2. METHOTREXATE SODIUM. [Suspect]
     Active Substance: METHOTREXATE SODIUM
     Dosage: 15 MG, QW
     Route: 048

REACTIONS (12)
  - Prostatic specific antigen increased [Unknown]
  - Metastases to bone [Unknown]
  - Off label use [Unknown]
  - Leukopenia [Unknown]
  - Bone marrow disorder [Unknown]
  - Myasthenic syndrome [Unknown]
  - General physical health deterioration [Unknown]
  - Hyperhidrosis [Unknown]
  - Anaemia [Unknown]
  - Petechiae [Unknown]
  - Weight decreased [Unknown]
  - Platelet count decreased [Unknown]
